FAERS Safety Report 25447092 (Version 1)
Quarter: 2025Q2

REPORT INFORMATION
  Report Type: Spontaneous
  Country: US (occurrence: None)
  Receive Date: 20250617
  Receipt Date: 20250617
  Transmission Date: 20250717
  Serious: Yes (Other)
  Sender: FDA-CTU
  Company Number: None

PATIENT
  Sex: Female

DRUGS (7)
  1. ORENCIA [Suspect]
     Active Substance: ABATACEPT
     Indication: Rheumatoid arthritis
     Dosage: INJECT 1 SYRINGE UNDER THE SKIN EVERY WEEK
     Route: 058
     Dates: start: 20250107
  2. EZETIMIBE [Concomitant]
     Active Substance: EZETIMIBE
  3. HUMIRA [Concomitant]
     Active Substance: ADALIMUMAB
  4. LIPITOR [Concomitant]
     Active Substance: ATORVASTATIN CALCIUM
  5. MELOXICAM [Concomitant]
     Active Substance: MELOXICAM
  6. OMEPRAZOLE [Concomitant]
     Active Substance: OMEPRAZOLE
  7. SYNTHROID [Concomitant]
     Active Substance: LEVOTHYROXINE SODIUM

REACTIONS (2)
  - Surgery [None]
  - Therapy interrupted [None]
